FAERS Safety Report 21711763 (Version 1)
Quarter: 2022Q4

REPORT INFORMATION
  Report Type: Spontaneous
  Country: DZ (occurrence: DZ)
  Receive Date: 20221212
  Receipt Date: 20221212
  Transmission Date: 20230112
  Serious: Yes (Other)
  Sender: FDA-Public Use
  Company Number: None

PATIENT
  Age: 2 Year
  Sex: Female

DRUGS (1)
  1. ERGOCALCIFEROL [Suspect]
     Active Substance: ERGOCALCIFEROL
     Indication: Product used for unknown indication
     Route: 048

REACTIONS (5)
  - Arteriosclerosis [Recovered/Resolved]
  - Toxicity to various agents [Unknown]
  - Hypervitaminosis D [Unknown]
  - Renal failure [Recovering/Resolving]
  - Hypertension [Recovered/Resolved]
